FAERS Safety Report 5213830-3 (Version None)
Quarter: 2007Q1

REPORT INFORMATION
  Report Type: 
  Country: None (occurrence: None)
  Receive Date: 20070119
  Receipt Date: 20070109
  Transmission Date: 20070707
  Serious: Yes (Hospitalization, Other)
  Sender: FDA-Public Use
  Company Number: US-PFIZER INC-2004109404

PATIENT
  Sex: Female
  Weight: 45.4 kg

DRUGS (9)
  1. CORTEF [Suspect]
     Indication: ADRENAL DISORDER
     Route: 048
  2. CORTEF [Suspect]
     Indication: BLOOD ALDOSTERONE DECREASED
  3. THYROID TAB [Concomitant]
     Route: 048
  4. FOSAMAX [Concomitant]
     Route: 048
  5. ZOLOFT [Concomitant]
     Route: 048
  6. ASPIRIN [Concomitant]
     Route: 048
  7. ASCORBIC ACID [Concomitant]
     Route: 048
  8. MIRALAX [Concomitant]
     Route: 048
  9. ATIVAN [Concomitant]
     Route: 048

REACTIONS (14)
  - ADVERSE EVENT [None]
  - BLOOD ELECTROLYTES INCREASED [None]
  - DIAPHRAGM MUSCLE WEAKNESS [None]
  - DIZZINESS [None]
  - DRUG HYPERSENSITIVITY [None]
  - DYSPNOEA [None]
  - EYE PAIN [None]
  - FATIGUE [None]
  - INCREASED UPPER AIRWAY SECRETION [None]
  - INITIAL INSOMNIA [None]
  - LACRIMATION INCREASED [None]
  - MULTIPLE ALLERGIES [None]
  - SLEEP APNOEA SYNDROME [None]
  - SOMNOLENCE [None]
